FAERS Safety Report 4587392-8 (Version None)
Quarter: 2005Q1

REPORT INFORMATION
  Report Type: 
  Country: None (occurrence: None)
  Receive Date: 20050215
  Receipt Date: 20050202
  Transmission Date: 20050727
  Serious: Yes (Other)
  Sender: FDA-Public Use
  Company Number: 2005025380

PATIENT
  Age: 47 Year
  Sex: Male
  Weight: 70 kg

DRUGS (1)
  1. BEXTRA [Suspect]
     Indication: PAIN
     Dosage: 20 MG (DAILY) ORAL
     Route: 048
     Dates: start: 20041111, end: 20050105

REACTIONS (2)
  - CHEST PAIN [None]
  - ELECTROCARDIOGRAM CHANGE [None]
